FAERS Safety Report 7212264-X (Version None)
Quarter: 2010Q4

REPORT INFORMATION
  Report Type: 
  Country: None (occurrence: None)
  Receive Date: 20101229
  Receipt Date: 20101216
  Transmission Date: 20110411
  Serious: Yes (Other)
  Sender: FDA-Public Use
  Company Number: 023902

PATIENT
  Sex: Female
  Weight: 70 kg

DRUGS (1)
  1. CIMZIA [Suspect]
     Indication: RHEUMATOID ARTHRITIS
     Dosage: (400 MG, 400-400-400-200 ETC SUBCUTANEOUS)
     Route: 058
     Dates: start: 20100603, end: 20101118

REACTIONS (1)
  - VAGINAL CANCER [None]
